FAERS Safety Report 23246189 (Version 2)
Quarter: 2023Q4

REPORT INFORMATION
  Report Type: Report from Study
  Country: US (occurrence: US)
  Receive Date: 20231130
  Receipt Date: 20231207
  Transmission Date: 20240110
  Serious: Yes (Hospitalization)
  Sender: FDA-Public Use
  Company Number: US-Eisai-EC-2023-153016

PATIENT
  Age: 77 Year
  Sex: Female

DRUGS (1)
  1. LENVIMA [Suspect]
     Active Substance: LENVATINIB
     Indication: Thyroid cancer
     Route: 048
     Dates: start: 20231025, end: 20231116

REACTIONS (5)
  - Haemorrhage [Unknown]
  - Tracheostomy infection [Unknown]
  - Tracheal obstruction [Unknown]
  - Haemoptysis [Unknown]
  - Haematochezia [Unknown]

NARRATIVE: CASE EVENT DATE: 20231108
